FAERS Safety Report 9618795 (Version 5)
Quarter: 2014Q1

REPORT INFORMATION
  Report Type: Spontaneous
  Country: DE (occurrence: DE)
  Receive Date: 20131014
  Receipt Date: 20140327
  Transmission Date: 20141002
  Serious: Yes (Death)
  Sender: FDA-Public Use
  Company Number: PHHY2013DE114582

PATIENT
  Age: 79 Year
  Sex: Female
  Weight: 60 kg

DRUGS (8)
  1. ACLASTA [Suspect]
     Indication: OSTEOPOROTIC FRACTURE
     Dosage: 5MG/100ML, UNK
     Route: 042
     Dates: start: 20130503
  2. FALITHROM [Concomitant]
     Dosage: UNK
  3. ASS RATIOPHARM [Concomitant]
     Dosage: 100 UKN, QD
  4. PENTALONG [Concomitant]
     Dosage: 50 MG, BID
  5. SIMVASTATIN RATIOPHARM [Concomitant]
     Dosage: 40 MG, QD
  6. METOPROLOL [Concomitant]
     Dosage: 50 , 1-0-1/2
  7. REMINYL [Concomitant]
     Dosage: UKN, QD
  8. DELMUNO [Concomitant]
     Dosage: 2.5 MG, QD

REACTIONS (1)
  - Cardiopulmonary failure [Fatal]
